FAERS Safety Report 24111397 (Version 1)
Quarter: 2024Q3

REPORT INFORMATION
  Report Type: Report from Study
  Country: IT (occurrence: IT)
  Receive Date: 20240718
  Receipt Date: 20240718
  Transmission Date: 20241017
  Serious: Yes (Hospitalization)
  Sender: MYLAN
  Company Number: IT-MYLANLABS-2024M1066993

PATIENT
  Age: 3 Year
  Sex: Female

DRUGS (12)
  1. AMBISOME [Suspect]
     Active Substance: AMPHOTERICIN B
     Indication: Aspergillus infection
     Dosage: UNK
     Route: 065
  2. AMBISOME [Suspect]
     Active Substance: AMPHOTERICIN B
     Indication: Bronchopulmonary aspergillosis
  3. AMBISOME [Suspect]
     Active Substance: AMPHOTERICIN B
     Indication: Spleen disorder
  4. AMBISOME [Suspect]
     Active Substance: AMPHOTERICIN B
     Indication: Liver disorder
  5. CASPOFUNGIN [Suspect]
     Active Substance: CASPOFUNGIN
     Indication: Aspergillus infection
     Dosage: UNK
     Route: 065
  6. CASPOFUNGIN [Suspect]
     Active Substance: CASPOFUNGIN
     Indication: Bronchopulmonary aspergillosis
  7. CASPOFUNGIN [Suspect]
     Active Substance: CASPOFUNGIN
     Indication: Liver disorder
  8. CASPOFUNGIN [Suspect]
     Active Substance: CASPOFUNGIN
     Indication: Spleen disorder
  9. VORICONAZOLE [Suspect]
     Active Substance: VORICONAZOLE
     Indication: Aspergillus infection
     Dosage: UNK
     Route: 065
  10. VORICONAZOLE [Suspect]
     Active Substance: VORICONAZOLE
     Indication: Bronchopulmonary aspergillosis
  11. VORICONAZOLE [Suspect]
     Active Substance: VORICONAZOLE
     Indication: Spleen disorder
  12. VORICONAZOLE [Suspect]
     Active Substance: VORICONAZOLE
     Indication: Liver disorder

REACTIONS (2)
  - Drug ineffective [Unknown]
  - Disease progression [Unknown]
